FAERS Safety Report 16181232 (Version 2)
Quarter: 2019Q2

REPORT INFORMATION
  Report Type: Spontaneous
  Country: US (occurrence: US)
  Receive Date: 20190410
  Receipt Date: 20190415
  Transmission Date: 20190711
  Serious: Yes (Other)
  Sender: FDA-Public Use
  Company Number: US-ALKERMES INC.-ALK-2019-001891

PATIENT
  Age: 25 Year
  Sex: Male

DRUGS (4)
  1. VIVITROL [Suspect]
     Active Substance: NALTREXONE
     Dosage: 380 MG, QMO
     Route: 030
     Dates: start: 201710
  2. CLONOPIN [Concomitant]
     Active Substance: CLONAZEPAM
     Indication: PRODUCT USED FOR UNKNOWN INDICATION
  3. VIVITROL [Suspect]
     Active Substance: NALTREXONE
     Indication: DRUG DEPENDENCE
     Dosage: 380 MG, QMO
     Route: 030
     Dates: start: 201803
  4. OTHER THERAPEUTIC PRODUCTS [Concomitant]
     Active Substance: UNSPECIFIED INGREDIENT
     Indication: SUPPLEMENTATION THERAPY

REACTIONS (6)
  - Drug dependence [Recovered/Resolved]
  - Needle issue [Recovered/Resolved]
  - Road traffic accident [Unknown]
  - Incorrect dose administered [Recovered/Resolved]
  - Overdose [Unknown]
  - Product administration error [Recovered/Resolved]

NARRATIVE: CASE EVENT DATE: 2018
